FAERS Safety Report 20544144 (Version 3)
Quarter: 2022Q3

REPORT INFORMATION
  Report Type: Spontaneous
  Country: US (occurrence: US)
  Receive Date: 20220303
  Receipt Date: 20220823
  Transmission Date: 20221027
  Serious: Yes (Hospitalization, Other)
  Sender: FDA-Public Use
  Company Number: US-Albireo AB-2022ALB000025

PATIENT
  Age: 8 Year
  Sex: Male
  Weight: 40 kg

DRUGS (5)
  1. BYLVAY [Suspect]
     Active Substance: ODEVIXIBAT
     Indication: Progressive familial intrahepatic cholestasis
     Route: 048
     Dates: start: 20220127, end: 20220211
  2. BYLVAY [Suspect]
     Active Substance: ODEVIXIBAT
     Route: 048
     Dates: start: 20220127
  3. CHOLESTYRAMINE [Concomitant]
     Active Substance: CHOLESTYRAMINE
  4. RIFAMPIN [Concomitant]
     Active Substance: RIFAMPIN
  5. URSODIOL [Concomitant]
     Active Substance: URSODIOL

REACTIONS (4)
  - Coagulopathy [Unknown]
  - Hepatic cirrhosis [Not Recovered/Not Resolved]
  - COVID-19 [Unknown]
  - Blood bilirubin increased [Unknown]

NARRATIVE: CASE EVENT DATE: 20220202
